FAERS Safety Report 7908371 (Version 3)
Quarter: 2014Q3

REPORT INFORMATION
  Report Type: Spontaneous
  Country: AU (occurrence: AU)
  Receive Date: 20110421
  Receipt Date: 20140725
  Transmission Date: 20150326
  Serious: Yes (Disabling, Other)
  Sender: FDA-Public Use
  Company Number: AU-ROCHE-771645

PATIENT
  Sex: Male
  Weight: 97 kg

DRUGS (5)
  1. PEGASYS [Suspect]
     Active Substance: PEGINTERFERON ALFA-2A
     Indication: HEPATITIS C
     Route: 065
     Dates: start: 200611, end: 200712
  2. RENITEC [Concomitant]
     Active Substance: ENALAPRIL MALEATE
     Indication: HYPERTENSION
     Dosage: START DATE: LONG TERM, DRUG: RENITECH
     Route: 048
  3. TESTOSTERON [Concomitant]
     Indication: ANDROGEN DEFICIENCY
     Dosage: START DATE: LONG TERM
     Route: 030
  4. RIBAVIRIN. [Suspect]
     Active Substance: RIBAVIRIN
     Indication: HEPATITIS C
     Route: 065
     Dates: start: 200611, end: 200712
  5. AMLODIPINE [Concomitant]
     Active Substance: AMLODIPINE BESYLATE
     Indication: HYPERTENSION
     Dosage: START DATE: LONG TERM
     Route: 048

REACTIONS (2)
  - Nervous system disorder [Unknown]
  - Cognitive disorder [Unknown]
